FAERS Safety Report 24953641 (Version 1)
Quarter: 2025Q1

REPORT INFORMATION
  Report Type: Spontaneous
  Country: US (occurrence: US)
  Receive Date: 20250211
  Receipt Date: 20250211
  Transmission Date: 20250408
  Serious: Yes (Hospitalization)
  Sender: BRISTOL-MYERS SQUIBB COMPANY
  Company Number: US-BRISTOL-MYERS SQUIBB COMPANY-2025-019284

PATIENT
  Age: 80 Year
  Sex: Male
  Weight: 77.1 kg

DRUGS (1)
  1. REVLIMID [Suspect]
     Active Substance: LENALIDOMIDE
     Indication: Plasma cell myeloma
     Dosage: ORALLY ONCE DAILY FOR 3 WEEKS ON, 1 OFF
     Route: 048

REACTIONS (1)
  - Adverse event [Unknown]
